FAERS Safety Report 21118998 (Version 1)
Quarter: 2022Q3

REPORT INFORMATION
  Report Type: Spontaneous
  Country: US (occurrence: None)
  Receive Date: 20220721
  Receipt Date: 20220721
  Transmission Date: 20221027
  Serious: No
  Sender: FDA-Public Use
  Company Number: None

PATIENT
  Age: 79 Year
  Sex: Male
  Weight: 84 kg

DRUGS (1)
  1. REMDESIVIR [Suspect]
     Active Substance: REMDESIVIR
     Dates: start: 20220224, end: 20220224

REACTIONS (4)
  - Wheezing [None]
  - Dyspnoea [None]
  - Flushing [None]
  - Hypersensitivity [None]

NARRATIVE: CASE EVENT DATE: 20220224
